FAERS Safety Report 22114953 (Version 1)
Quarter: 2023Q1

REPORT INFORMATION
  Report Type: Spontaneous
  Country: US (occurrence: US)
  Receive Date: 20230320
  Receipt Date: 20230320
  Transmission Date: 20230418
  Serious: Yes (Other)
  Sender: FDA-Public Use
  Company Number: US-AZURITY PHARMACEUTICALS, INC.-US-2023ARB000574

PATIENT
  Age: 5 Year

DRUGS (3)
  1. ZONISADE [Suspect]
     Active Substance: ZONISAMIDE
     Indication: Product used for unknown indication
     Dosage: 80 MG, BID C
     Route: 065
     Dates: start: 20221118, end: 2023
  2. ZONISADE [Suspect]
     Active Substance: ZONISAMIDE
     Dosage: 160 MG, BID (100MG/5ML)
     Route: 065
     Dates: start: 2023
  3. VIMPAT [Concomitant]
     Active Substance: LACOSAMIDE
     Indication: Product used for unknown indication
     Dosage: 170 MG, BID

REACTIONS (4)
  - Partial seizures [Unknown]
  - Product dispensing error [Unknown]
  - Incorrect dose administered [Unknown]
  - Product use issue [Unknown]

NARRATIVE: CASE EVENT DATE: 20221118
